FAERS Safety Report 6176921-9 (Version None)
Quarter: 2009Q2

REPORT INFORMATION
  Report Type: 
  Country: None (occurrence: None)
  Receive Date: 20090501
  Receipt Date: 20090102
  Transmission Date: 20091009
  Serious: Yes (Hospitalization)
  Sender: FDA-Public Use
  Company Number: US-ALEXION-A200900007

PATIENT
  Sex: Female

DRUGS (1)
  1. SOLIRIS [Suspect]
     Indication: PAROXYSMAL NOCTURNAL HAEMOGLOBINURIA
     Dosage: UNK

REACTIONS (4)
  - DIARRHOEA [None]
  - MALAISE [None]
  - NAUSEA [None]
  - VOMITING [None]
